FAERS Safety Report 18840816 (Version 1)
Quarter: 2021Q1

REPORT INFORMATION
  Report Type: Spontaneous
  Country: BE (occurrence: BE)
  Receive Date: 20210203
  Receipt Date: 20210203
  Transmission Date: 20210419
  Serious: Yes (Other)
  Sender: FDA-Public Use
  Company Number: BE-SA-2021SA031480

PATIENT
  Sex: Male

DRUGS (4)
  1. LEMTRADA [Suspect]
     Active Substance: ALEMTUZUMAB
     Indication: MULTIPLE SCLEROSIS
     Dosage: DOSAGE OF 300 LYMPHO / MM?
     Dates: start: 2017, end: 2017
  2. LEMTRADA [Suspect]
     Active Substance: ALEMTUZUMAB
     Dosage: UNK
     Dates: start: 201907, end: 201907
  3. LEMTRADA [Suspect]
     Active Substance: ALEMTUZUMAB
     Dosage: DOSAGE OF 630 LYMPHO / MM?
     Dates: start: 2018, end: 2018
  4. LEMTRADA [Suspect]
     Active Substance: ALEMTUZUMAB
     Dosage: UNK
     Dates: start: 202009, end: 202009

REACTIONS (2)
  - Leukopenia [Unknown]
  - Lymphopenia [Unknown]

NARRATIVE: CASE EVENT DATE: 2017
